FAERS Safety Report 9935190 (Version 2)
Quarter: 2014Q2

REPORT INFORMATION
  Report Type: Spontaneous
  Country: US (occurrence: US)
  Receive Date: 20140228
  Receipt Date: 20140414
  Transmission Date: 20141212
  Serious: Yes (Life-Threatening, Congenital Anomaly, Other)
  Sender: FDA-Public Use
  Company Number: US-PFIZER INC-2014055301

PATIENT
  Sex: Female

DRUGS (3)
  1. ZOLOFT [Suspect]
     Dosage: UNK
     Route: 064
     Dates: start: 200810, end: 201103
  2. SERTRALINE HCL [Suspect]
     Dosage: UNK
     Route: 064
     Dates: start: 200810, end: 201103
  3. PRENATAL VITAMINS [Concomitant]
     Dosage: UNK
     Route: 064

REACTIONS (9)
  - Maternal exposure during pregnancy [Unknown]
  - Congenital anomaly [Unknown]
  - Cleft palate [Unknown]
  - Cleft uvula [Unknown]
  - Failure to thrive [Unknown]
  - Premature baby [Unknown]
  - Gastrooesophageal reflux disease [Unknown]
  - Feeding disorder [Unknown]
  - Hypotonia [Unknown]
